FAERS Safety Report 12760329 (Version 1)
Quarter: 2016Q3

REPORT INFORMATION
  Report Type: Report from Study
  Country: PA (occurrence: PA)
  Receive Date: 20160919
  Receipt Date: 20160919
  Transmission Date: 20161109
  Serious: Yes (Other)
  Sender: FDA-Public Use
  Company Number: PHHY2016PA005251

PATIENT
  Age: 32 Year
  Sex: Female

DRUGS (1)
  1. GILENYA [Suspect]
     Active Substance: FINGOLIMOD HYDROCHLORIDE
     Indication: PRODUCT USED FOR UNKNOWN INDICATION
     Dosage: 0.5 MG, UNK
     Route: 065

REACTIONS (10)
  - Pain [Unknown]
  - Intraocular pressure increased [Unknown]
  - Brain oedema [Unknown]
  - Hemiparesis [Unknown]
  - Meige^s syndrome [Unknown]
  - Blood pressure increased [Unknown]
  - Dysphagia [Unknown]
  - Hypoaesthesia [Unknown]
  - Dysarthria [Unknown]
  - Central nervous system lesion [Unknown]
